FAERS Safety Report 18264815 (Version 6)
Quarter: 2021Q3

REPORT INFORMATION
  Report Type: Report from Study
  Country: DE (occurrence: DE)
  Receive Date: 20200914
  Receipt Date: 20210805
  Transmission Date: 20211014
  Serious: Yes (Hospitalization, Other)
  Sender: FDA-Public Use
  Company Number: NVSC2020DE249263

PATIENT
  Sex: Female
  Weight: 65.5 kg

DRUGS (5)
  1. KISQALI [Suspect]
     Active Substance: RIBOCICLIB
     Dosage: 400 MG, QD (21 DAYS SCHEME, 7 DAYAS PAUSE)
     Route: 048
     Dates: start: 20200521, end: 20200622
  2. FULVESTRANT. [Suspect]
     Active Substance: FULVESTRANT
     Indication: BREAST CANCER METASTATIC
     Dosage: 500 MG, Q4W (DAILY DOSE)
     Route: 030
     Dates: start: 20200415, end: 20200813
  3. KISQALI [Suspect]
     Active Substance: RIBOCICLIB
     Indication: BREAST CANCER METASTATIC
     Dosage: 400 MG, QD (21 DAYS SCHEME, 7 DAYAS PAUSE)
     Route: 048
     Dates: start: 20200415, end: 20200516
  4. KISQALI [Suspect]
     Active Substance: RIBOCICLIB
     Dosage: 400 MG, QD (21 DAYS SCHEME, 7 DAYAS PAUSE)
     Route: 048
     Dates: start: 20200717, end: 20200729
  5. KISQALI [Suspect]
     Active Substance: RIBOCICLIB
     Dosage: 400 MG, QD (21 DAYS SCHEME, 7 DAYAS PAUSE)
     Route: 048
     Dates: start: 20200805, end: 20200826

REACTIONS (6)
  - General physical health deterioration [Not Recovered/Not Resolved]
  - Hypocalcaemia [Not Recovered/Not Resolved]
  - Tachyarrhythmia [Recovering/Resolving]
  - Pneumonia [Recovered/Resolved]
  - Renal failure [Not Recovered/Not Resolved]
  - Dysarthria [Recovered/Resolved]

NARRATIVE: CASE EVENT DATE: 20200415
